FAERS Safety Report 6720620-9 (Version None)
Quarter: 2010Q2

REPORT INFORMATION
  Report Type: 
  Country: None (occurrence: None)
  Receive Date: 20100510
  Receipt Date: 20100427
  Transmission Date: 20101027
  Serious: No
  Sender: FDA-Public Use
  Company Number: B0651505A

PATIENT
  Age: 31 Year
  Sex: Female

DRUGS (2)
  1. CEFUROXIME SODIUM [Suspect]
     Indication: URINARY TRACT INFECTION
  2. ACETAMINOPHEN [Suspect]
     Indication: URINARY TRACT INFECTION

REACTIONS (7)
  - AORTIC VALVE INCOMPETENCE [None]
  - CAESAREAN SECTION [None]
  - DYSPNOEA [None]
  - ENDOCARDITIS [None]
  - PAIN IN EXTREMITY [None]
  - PAIN OF SKIN [None]
  - PULMONARY EMBOLISM [None]
